FAERS Safety Report 5464222-3 (Version None)
Quarter: 2007Q3

REPORT INFORMATION
  Report Type: 
  Country: None (occurrence: None)
  Receive Date: 20070921
  Receipt Date: 20070911
  Transmission Date: 20080115
  Serious: Yes (Other)
  Sender: FDA-Public Use
  Company Number: US-ELI_LILLY_AND_COMPANY-US200709003382

PATIENT
  Sex: Female

DRUGS (2)
  1. ILETIN [Suspect]
  2. ILETIN I [Suspect]

REACTIONS (5)
  - DRUG EXPOSURE DURING PREGNANCY [None]
  - EYE HAEMORRHAGE [None]
  - PERIODONTAL DISEASE [None]
  - TOOTH INJURY [None]
  - VISUAL ACUITY REDUCED [None]
